FAERS Safety Report 5530217-4 (Version None)
Quarter: 2007Q4

REPORT INFORMATION
  Report Type: 
  Country: None (occurrence: None)
  Receive Date: 20071127
  Receipt Date: 20071121
  Transmission Date: 20080405
  Serious: Yes (Other)
  Sender: FDA-Public Use
  Company Number: JPI-P-002528

PATIENT
  Age: 60 Year
  Sex: Female

DRUGS (2)
  1. XYREM [Suspect]
     Indication: SLEEP DISORDER
     Dosage: ORAL; 6 GM (3 MG, 2 IN 1 D), ORAL
     Route: 048
     Dates: start: 20071001, end: 20071117
  2. XYREM [Suspect]
     Indication: SLEEP DISORDER
     Dosage: ORAL; 6 GM (3 MG, 2 IN 1 D), ORAL
     Route: 048
     Dates: start: 20071118

REACTIONS (1)
  - CONVULSION [None]
